FAERS Safety Report 4683146-2 (Version None)
Quarter: 2005Q2

REPORT INFORMATION
  Report Type: 
  Country: None (occurrence: None)
  Receive Date: 20050602
  Receipt Date: 20050328
  Transmission Date: 20051028
  Serious: No
  Sender: FDA-Public Use
  Company Number: USA050394357

PATIENT
  Age: 51 Year
  Sex: Female

DRUGS (4)
  1. CYMBALTA [Suspect]
     Indication: DEPRESSION
     Dosage: 60 MG DAY
     Dates: start: 20050311
  2. WELLBUTRIN [Concomitant]
  3. BUSPAR [Concomitant]
  4. KLONOPIN [Concomitant]

REACTIONS (6)
  - CRYING [None]
  - HEADACHE [None]
  - INSOMNIA [None]
  - MENSTRUATION IRREGULAR [None]
  - NIGHTMARE [None]
  - SOMNOLENCE [None]
